FAERS Safety Report 4817317-9 (Version None)
Quarter: 2005Q4

REPORT INFORMATION
  Report Type: 
  Country: None (occurrence: None)
  Receive Date: 20051101
  Receipt Date: 20051021
  Transmission Date: 20060501
  Serious: Yes (Hospitalization)
  Sender: FDA-Public Use
  Company Number: GB-NOVOPROD-247950

PATIENT
  Age: 56 Year
  Sex: Male
  Weight: 106 kg

DRUGS (7)
  1. LEVEMIR [Suspect]
     Indication: INSULIN-REQUIRING TYPE II DIABETES MELLITUS
     Dosage: 130 IU, QD
     Route: 058
     Dates: start: 20050310, end: 20051016
  2. HUMALOG [Concomitant]
     Dosage: 78 IU, QD
     Route: 058
     Dates: start: 20050310, end: 20051016
  3. VALSARTAN [Concomitant]
     Dosage: 40 MG, QD
     Route: 048
  4. SIMVASTATIN [Concomitant]
     Dosage: 40 MG, QD
     Route: 048
  5. DOXAZOSIN [Concomitant]
     Dosage: 2 MG, QD
     Route: 048
  6. FENOFIBRATE [Concomitant]
     Dosage: 200 MG, QD
     Route: 048
  7. LOFEPRAMINE [Concomitant]
     Dosage: 140 MG, QD
     Route: 048

REACTIONS (3)
  - CELLULITIS [None]
  - INJECTION SITE CELLULITIS [None]
  - INJECTION SITE REACTION [None]
